FAERS Safety Report 5241466-7 (Version None)
Quarter: 2007Q1

REPORT INFORMATION
  Report Type: 
  Country: None (occurrence: None)
  Receive Date: 20070220
  Receipt Date: 20070206
  Transmission Date: 20070707
  Serious: Yes (Other)
  Sender: FDA-Public Use
  Company Number: DE-AMGEN-UK051351

PATIENT
  Sex: Male
  Weight: 80 kg

DRUGS (4)
  1. NEUPOGEN [Suspect]
     Indication: PRE-EXISTING DISEASE
     Route: 058
     Dates: start: 20030820, end: 20030822
  2. ASPIRIN [Concomitant]
  3. CLOPIDOGREL [Concomitant]
  4. TIROFIBAN [Concomitant]

REACTIONS (3)
  - CORONARY ARTERY RESTENOSIS [None]
  - DRESSLER'S SYNDROME [None]
  - PERICARDIAL EFFUSION [None]
